FAERS Safety Report 17207155 (Version 3)
Quarter: 2020Q1

REPORT INFORMATION
  Report Type: Report from Study
  Country: PK (occurrence: PK)
  Receive Date: 20191227
  Receipt Date: 20200114
  Transmission Date: 20200409
  Serious: Yes (Death, Other)
  Sender: FDA-Public Use
  Company Number: NVSC2019PK079040

PATIENT
  Age: 36 Year
  Sex: Male

DRUGS (1)
  1. VOTRIENT [Suspect]
     Active Substance: PAZOPANIB HYDROCHLORIDE
     Indication: RENAL CANCER STAGE II
     Dosage: 400 MG, BID
     Route: 048
     Dates: start: 20191001

REACTIONS (15)
  - Cardiopulmonary failure [Fatal]
  - Altered state of consciousness [Unknown]
  - Hypophagia [Unknown]
  - Pleural effusion [Unknown]
  - Neoplasm malignant [Fatal]
  - Dyspnoea [Unknown]
  - Haematuria [Unknown]
  - Inappropriate schedule of product administration [Unknown]
  - Multiple organ dysfunction syndrome [Fatal]
  - Metastasis [Unknown]
  - Metastases to lung [Unknown]
  - Cachexia [Unknown]
  - Oedematous kidney [Unknown]
  - General physical health deterioration [Unknown]
  - Pyrexia [Unknown]
